FAERS Safety Report 9962213 (Version 1)
Quarter: 2014Q1

REPORT INFORMATION
  Report Type: Report from Study
  Country: US (occurrence: US)
  Receive Date: 20140305
  Receipt Date: 20140305
  Transmission Date: 20141002
  Serious: No
  Sender: FDA-Public Use
  Company Number: US-ABBVIE-13P-163-1114834-00

PATIENT
  Age: 62 Year
  Sex: Male

DRUGS (6)
  1. HUMIRA [Suspect]
     Indication: PSORIASIS
     Route: 058
     Dates: start: 20130423
  2. LOSARTAN / HYDROCHLOROTHIAZID STADA [Concomitant]
     Indication: HYPERTENSION
     Dosage: 12.5 MG DAILY
  3. ZOLPIDEM [Concomitant]
     Indication: INSOMNIA
     Dosage: 10 MG DAILY AT BEDTIME
  4. CITALOPRAM [Concomitant]
     Indication: ANXIETY
     Dosage: 20 MG DAILY
  5. CITALOPRAM [Concomitant]
     Indication: DEPRESSION
  6. OXYCODONE [Concomitant]
     Indication: PAIN
     Dosage: 15 MG 4 TIMES PER DAY

REACTIONS (2)
  - Excoriation [Not Recovered/Not Resolved]
  - Impaired healing [Not Recovered/Not Resolved]
